FAERS Safety Report 7489992-4 (Version None)
Quarter: 2011Q2

REPORT INFORMATION
  Report Type: 
  Country: None (occurrence: None)
  Receive Date: 20110512
  Receipt Date: 20110427
  Transmission Date: 20111010
  Serious: Yes (Hospitalization)
  Sender: FDA-Public Use
  Company Number: GER/ITL/11/0018169

PATIENT
  Age: 65 Year
  Sex: Female

DRUGS (2)
  1. TOPIRAMATE [Suspect]
     Indication: MIGRAINE
     Dosage: 50 MG
  2. CITALOPRAM HYDROBROMIDE [Suspect]
     Indication: DEPRESSION
     Dosage: 20 MG

REACTIONS (6)
  - SEROTONIN SYNDROME [None]
  - DRUG INTERACTION [None]
  - IRRITABILITY [None]
  - MYOCLONUS [None]
  - CONFUSIONAL STATE [None]
  - TREMOR [None]
